FAERS Safety Report 7157249-7 (Version None)
Quarter: 2010Q4

REPORT INFORMATION
  Report Type: 
  Country: None (occurrence: None)
  Receive Date: 20101214
  Receipt Date: 20101207
  Transmission Date: 20110411
  Serious: Yes (Hospitalization)
  Sender: FDA-Public Use
  Company Number: JP-ABBOTT-08P-087-0460041-00

PATIENT
  Age: 79 Year
  Sex: Male

DRUGS (10)
  1. LEUPROLIDE ACETATE [Suspect]
     Indication: PROSTATE CANCER STAGE II
     Route: 058
     Dates: start: 20061218, end: 20070605
  2. LEUPROLIDE ACETATE [Suspect]
     Route: 058
     Dates: start: 20071001
  3. CASODEX [Concomitant]
     Indication: PROSTATE CANCER STAGE II
     Route: 048
  4. NOVORAPID [Concomitant]
     Indication: DIABETES MELLITUS
     Route: 058
     Dates: start: 20070227, end: 20070313
  5. NOVORAPID [Concomitant]
     Route: 058
     Dates: start: 20070314, end: 20070402
  6. NOVORAPID [Concomitant]
     Route: 058
     Dates: start: 20070403, end: 20070729
  7. NOVORAPID [Concomitant]
     Route: 058
     Dates: start: 20070730
  8. NOVOLIN 70/30 [Concomitant]
     Indication: DIABETES MELLITUS
     Route: 058
     Dates: start: 20070226, end: 20070312
  9. NOVOLIN 70/30 [Concomitant]
     Route: 058
     Dates: start: 20070313
  10. NOVOLIN 70/30 [Concomitant]
     Route: 058
     Dates: start: 20070730, end: 20071028

REACTIONS (9)
  - ABDOMINAL PAIN [None]
  - ANAEMIA [None]
  - BRONCHITIS [None]
  - DIARRHOEA [None]
  - HERPES ZOSTER [None]
  - INSOMNIA [None]
  - LYMPHOMA [None]
  - PNEUMONIA [None]
  - WHITE BLOOD CELL COUNT DECREASED [None]
